FAERS Safety Report 9124667 (Version 2)
Quarter: 2013Q1

REPORT INFORMATION
  Report Type: Spontaneous
  Country: US (occurrence: US)
  Receive Date: 20130227
  Receipt Date: 20130307
  Transmission Date: 20140127
  Serious: Yes (Disabling, Other)
  Sender: FDA-Public Use
  Company Number: CHPA2013US003535

PATIENT
  Age: 40 Year
  Sex: Female

DRUGS (4)
  1. VOLTAREN GEL [Suspect]
     Indication: BURSITIS
     Dosage: 2 G, UNK
     Route: 061
  2. NEURONTIN [Concomitant]
     Dosage: 600 MG, 2-3 TIMES DAILY
  3. TRAMADOL [Concomitant]
  4. MELOXICAM [Concomitant]
     Dosage: UNK, BID

REACTIONS (10)
  - Activities of daily living impaired [Recovering/Resolving]
  - Cystitis [Recovering/Resolving]
  - Cystitis noninfective [Recovering/Resolving]
  - Intervertebral disc degeneration [Recovering/Resolving]
  - Concomitant disease aggravated [Recovering/Resolving]
  - Insomnia [Recovering/Resolving]
  - Pain [Recovering/Resolving]
  - Off label use [Unknown]
  - Therapeutic response unexpected [Unknown]
  - Drug administered at inappropriate site [Unknown]
